FAERS Safety Report 6854285-2 (Version None)
Quarter: 2010Q3

REPORT INFORMATION
  Report Type: 
  Country: None (occurrence: None)
  Receive Date: 20100717
  Receipt Date: 20080101
  Transmission Date: 20110219
  Serious: No
  Sender: FDA-Public Use
  Company Number: US-PFIZER INC-2008000751

PATIENT
  Sex: Male
  Weight: 82.3 kg

DRUGS (3)
  1. CHANTIX [Suspect]
     Indication: SMOKING CESSATION THERAPY
     Dates: start: 20071201, end: 20080101
  2. CAPTOPRIL [Concomitant]
  3. SYNTHROID [Concomitant]

REACTIONS (4)
  - DEREALISATION [None]
  - NAUSEA [None]
  - SOMNOLENCE [None]
  - VOMITING [None]
